FAERS Safety Report 19753086 (Version 1)
Quarter: 2021Q3

REPORT INFORMATION
  Report Type: Report from Study
  Country: EG (occurrence: EG)
  Receive Date: 20210826
  Receipt Date: 20210826
  Transmission Date: 20211014
  Serious: Yes (Hospitalization, Other)
  Sender: FDA-Public Use
  Company Number: NVSC2021EG184940

PATIENT
  Age: 73 Year
  Sex: Female

DRUGS (5)
  1. SPRYCEL [Suspect]
     Active Substance: DASATINIB
     Dosage: 1 DF, QD (DUE TO UNAVAILABILITY OF SPRYCEL TILL STOPPING THE MEDICATION)
     Route: 065
     Dates: start: 20210510
  2. TASIGNA [Suspect]
     Active Substance: NILOTINIB
     Indication: CHRONIC MYELOID LEUKAEMIA
     Dosage: 4 DF, QD (STARTED 4 YEARS AGO)
     Route: 065
     Dates: end: 20210309
  3. SPRYCEL [Suspect]
     Active Substance: DASATINIB
     Indication: CHRONIC MYELOID LEUKAEMIA
     Dosage: 2 DF, QD
     Route: 065
     Dates: start: 20210309, end: 20210509
  4. OMEPRAZOLE. [Concomitant]
     Active Substance: OMEPRAZOLE
     Indication: GASTROINTESTINAL DISORDER
     Dosage: UNK
     Route: 065
  5. GLIVEC [Suspect]
     Active Substance: IMATINIB MESYLATE
     Indication: CHRONIC MYELOID LEUKAEMIA
     Dosage: 4 DF, QD (STARTED 8 TO 10 YEARS AGO AND CONTINUED FOR 3 TO4 YEARS)
     Route: 065

REACTIONS (20)
  - Cerebral thrombosis [Recovering/Resolving]
  - Limb discomfort [Recovering/Resolving]
  - Contusion [Not Recovered/Not Resolved]
  - Myocardial infarction [Recovered/Resolved]
  - Weight decreased [Recovering/Resolving]
  - Gangrene [Not Recovered/Not Resolved]
  - Gait disturbance [Recovering/Resolving]
  - Product availability issue [Unknown]
  - Rash [Recovering/Resolving]
  - Cytogenetic analysis abnormal [Not Recovered/Not Resolved]
  - Vomiting [Recovering/Resolving]
  - Diarrhoea [Recovered/Resolved]
  - Dysphagia [Recovered/Resolved]
  - Cerebrovascular accident [Unknown]
  - Nausea [Recovering/Resolving]
  - Arterial occlusive disease [Not Recovered/Not Resolved]
  - Anaemia [Recovered/Resolved]
  - Herpes zoster [Recovering/Resolving]
  - Post procedural sepsis [Recovered/Resolved]
  - Pyrexia [Recovered/Resolved]

NARRATIVE: CASE EVENT DATE: 2017
